FAERS Safety Report 4447269-5 (Version None)
Quarter: 2004Q3

REPORT INFORMATION
  Report Type: 
  Country: None (occurrence: None)
  Receive Date: 20040813
  Receipt Date: 20040628
  Transmission Date: 20050211
  Serious: No
  Sender: FDA-Public Use
  Company Number: S04-USA-04060-01

PATIENT
  Age: 76 Year
  Sex: Female

DRUGS (10)
  1. NAMENDA [Suspect]
     Indication: DEMENTIA ALZHEIMER'S TYPE
     Dosage: 15 MG QD PO
     Route: 048
  2. NAMENDA [Suspect]
     Indication: DEMENTIA ALZHEIMER'S TYPE
     Dosage: 5 MG QD PO
     Route: 048
  3. NAMENDA [Suspect]
     Indication: DEMENTIA ALZHEIMER'S TYPE
     Dosage: 10 MG QD PO
     Route: 048
  4. AMARYL [Concomitant]
  5. METHOTREXATE [Concomitant]
  6. ZOLOFT [Concomitant]
  7. VERAPAMIL [Concomitant]
  8. GLUCOPHAGE [Concomitant]
  9. RISPERDAL [Concomitant]
  10. FOLIC ACID [Concomitant]

REACTIONS (2)
  - BELLIGERENCE [None]
  - HALLUCINATION [None]
